FAERS Safety Report 22615850 (Version 1)
Quarter: 2023Q2

REPORT INFORMATION
  Report Type: Report from Study
  Country: US (occurrence: None)
  Receive Date: 20230619
  Receipt Date: 20230619
  Transmission Date: 20230722
  Serious: Yes (Other)
  Sender: FDA-Public Use
  Company Number: 2023A139007

PATIENT
  Sex: Male

DRUGS (7)
  1. CALQUENCE [Suspect]
     Active Substance: ACALABRUTINIB
     Indication: Mantle cell lymphoma
     Route: 048
  2. ELLOPURINOL [Concomitant]
  3. ESCITALOPRAM [Concomitant]
     Active Substance: ESCITALOPRAM OXALATE
  4. LEVAQUIN [Concomitant]
     Active Substance: LEVOFLOXACIN
  5. LOSARTAN [Concomitant]
     Active Substance: LOSARTAN
  6. NORVASC [Concomitant]
     Active Substance: AMLODIPINE BESYLATE
  7. FAMOTIDINE [Concomitant]
     Active Substance: FAMOTIDINE

REACTIONS (1)
  - Pneumonitis [Recovered/Resolved]
